FAERS Safety Report 8925955 (Version 2)
Quarter: 2013Q1

REPORT INFORMATION
  Report Type: Spontaneous
  Country: US (occurrence: US)
  Receive Date: 20121126
  Receipt Date: 20130123
  Transmission Date: 20140127
  Serious: Yes (Other)
  Sender: FDA-Public Use
  Company Number: US-ASTRAZENECA-2012SE86565

PATIENT
  Age: 80 Year
  Sex: Female

DRUGS (4)
  1. NEXIUM [Suspect]
     Indication: ABDOMINAL DISCOMFORT
     Route: 048
  2. METOPROLOL [Suspect]
     Indication: HYPERTENSION
     Route: 065
  3. LISINOPRIL [Suspect]
     Indication: HYPERTENSION
     Route: 048
  4. LOVASTATIN [Concomitant]
     Indication: BLOOD CHOLESTEROL ABNORMAL

REACTIONS (3)
  - Pancreatitis chronic [Unknown]
  - Off label use [Unknown]
  - Intentional drug misuse [Unknown]
